FAERS Safety Report 23683284 (Version 1)
Quarter: 2024Q1

REPORT INFORMATION
  Report Type: Spontaneous
  Country: FR (occurrence: FR)
  Receive Date: 20240328
  Receipt Date: 20240328
  Transmission Date: 20240410
  Serious: Yes (Life-Threatening, Hospitalization)
  Sender: FDA-Public Use
  Company Number: FR-ROCHE-3530660

PATIENT
  Age: 52 Year
  Sex: Female
  Weight: 106 kg

DRUGS (5)
  1. VISMODEGIB [Suspect]
     Active Substance: VISMODEGIB
     Indication: Product used for unknown indication
     Route: 065
  2. ODOMZO [Suspect]
     Active Substance: SONIDEGIB
     Indication: Basal cell naevus syndrome
     Dosage: 200 MILLIGRAM, DAILY
     Route: 065
     Dates: start: 20230620, end: 20240129
  3. ODOMZO [Suspect]
     Active Substance: SONIDEGIB
     Indication: Basal cell carcinoma
     Dosage: 200 MILLIGRAM, QOD
     Route: 065
     Dates: start: 20240130, end: 20240202
  4. NICARDIPINE [Concomitant]
     Active Substance: NICARDIPINE
     Indication: Hypertension
     Dosage: IF NECESSARY
     Dates: start: 2015
  5. FUROSEMIDE [Concomitant]
     Active Substance: FUROSEMIDE
     Indication: Respiratory depression

REACTIONS (11)
  - Asthenia [Unknown]
  - Decreased appetite [Unknown]
  - Cardiac failure [Recovered/Resolved with Sequelae]
  - Hyperleukocytosis [Not Recovered/Not Resolved]
  - Muscle spasms [Unknown]
  - Ejection fraction decreased [Recovered/Resolved with Sequelae]
  - Cell death [Unknown]
  - Alopecia [Unknown]
  - Nausea [Unknown]
  - Dyslipidaemia [Not Recovered/Not Resolved]
  - Diabetes insipidus [Recovered/Resolved with Sequelae]
